FAERS Safety Report 17827063 (Version 1)
Quarter: 2020Q2

REPORT INFORMATION
  Report Type: Spontaneous
  Country: LT (occurrence: LT)
  Receive Date: 20200527
  Receipt Date: 20200527
  Transmission Date: 20200714
  Serious: Yes (Hospitalization, Congenital Anomaly, Other)
  Sender: FDA-Public Use
  Company Number: LT-GLAXOSMITHKLINE-LT2020GSK084059

PATIENT
  Sex: Male
  Weight: 3.61 kg

DRUGS (9)
  1. PROPAFENONE. [Suspect]
     Active Substance: PROPAFENONE
     Indication: ATRIOVENTRICULAR CONDUCTION TIME SHORTENED
     Dosage: 140 MG
     Route: 064
  2. DIGOXIN. [Suspect]
     Active Substance: DIGOXIN
     Indication: FOETAL ARRHYTHMIA
     Dosage: 0.25 MG LOADING DOSE, REPEATED AFTER 2.5 H
     Route: 064
  3. DEXAMETHASONE. [Suspect]
     Active Substance: DEXAMETHASONE
     Indication: MATERNAL THERAPY TO ENHANCE FOETAL LUNG MATURITY
     Dosage: 12 MG
     Route: 064
  4. SOTALOL. [Suspect]
     Active Substance: SOTALOL
     Indication: TACHYCARDIA FOETAL
     Dosage: 80 MG EVERY EIGHT HOURS
     Route: 064
  5. DIGOXIN. [Suspect]
     Active Substance: DIGOXIN
     Dosage: 0.25 MG
     Route: 064
  6. OSELTAMIVIR [Suspect]
     Active Substance: OSELTAMIVIR
     Indication: INFLUENZA
     Dosage: UNK
     Route: 064
  7. DIGOXIN. [Suspect]
     Active Substance: DIGOXIN
     Dosage: 0.25 MG
     Route: 064
  8. PROPAFENONE. [Suspect]
     Active Substance: PROPAFENONE
     Indication: FOETAL ARRHYTHMIA
     Dosage: 150 MG
     Route: 064
  9. METOPROLOL. [Suspect]
     Active Substance: METOPROLOL
     Indication: FOETAL ARRHYTHMIA
     Dosage: 50 MG
     Route: 064

REACTIONS (14)
  - Tachyarrhythmia [Recovered/Resolved]
  - Supraventricular tachycardia [Unknown]
  - Drug ineffective [Unknown]
  - Tachycardia foetal [Recovered/Resolved]
  - Foetal exposure during pregnancy [Unknown]
  - Wolff-Parkinson-White syndrome congenital [Unknown]
  - Tachypnoea [Unknown]
  - Foetal heart rate abnormal [Recovered/Resolved]
  - Foetal tachyarrhythmia [Recovered/Resolved]
  - Oedema [Unknown]
  - Foetal hypokinesia [Unknown]
  - Cardiac failure [Recovered/Resolved]
  - Cyanosis [Unknown]
  - Tachycardia [Recovered/Resolved]
